FAERS Safety Report 9695390 (Version 2)
Quarter: 2014Q1

REPORT INFORMATION
  Report Type: Spontaneous
  Country: BR (occurrence: BR)
  Receive Date: 20131119
  Receipt Date: 20140110
  Transmission Date: 20141002
  Serious: Yes (Hospitalization)
  Sender: FDA-Public Use
  Company Number: BR-009507513-1311BRA005854

PATIENT
  Age: 36 Year
  Sex: Female
  Weight: 72 kg

DRUGS (3)
  1. NUVARING [Suspect]
     Indication: CONTRACEPTION
     Dosage: UNK
     Route: 067
     Dates: start: 201210
  2. NUVARING [Suspect]
     Dosage: UNK
     Route: 067
     Dates: start: 20131112
  3. CENTRUM (MINERALS (UNSPECIFIED) (+) VITAMINS (UNSPECIFIED)) [Concomitant]
     Indication: VITAMIN SUPPLEMENTATION
     Dosage: UNK, QD
     Route: 048

REACTIONS (5)
  - Shoulder operation [Recovering/Resolving]
  - Road traffic accident [Recovering/Resolving]
  - Pain [Recovered/Resolved]
  - Menstruation irregular [Recovered/Resolved]
  - Drug administration error [Unknown]
